FAERS Safety Report 23058745 (Version 1)
Quarter: 2023Q4

REPORT INFORMATION
  Report Type: Spontaneous
  Country: US (occurrence: US)
  Receive Date: 20231012
  Receipt Date: 20231012
  Transmission Date: 20240109
  Serious: Yes (Hospitalization)
  Sender: FDA-Public Use
  Company Number: US-SPECGX-T202301993

PATIENT
  Age: 41 Year
  Sex: Male

DRUGS (1)
  1. FENTANYL CITRATE [Suspect]
     Active Substance: FENTANYL CITRATE
     Indication: Product used for unknown indication
     Dosage: UNK

REACTIONS (3)
  - Pulmonary alveolar haemorrhage [Recovering/Resolving]
  - Unresponsive to stimuli [Recovering/Resolving]
  - Incorrect route of product administration [Unknown]
